FAERS Safety Report 11446844 (Version 1)
Quarter: 2015Q3

REPORT INFORMATION
  Report Type: Spontaneous
  Country: US (occurrence: US)
  Receive Date: 20150831
  Receipt Date: 20150831
  Transmission Date: 20151125
  Serious: No
  Sender: FDA-Public Use
  Company Number: US-ELI_LILLY_AND_COMPANY-US200809004549

PATIENT
  Age: 66 Year
  Sex: Male

DRUGS (2)
  1. PENICILLIN NOS [Concomitant]
     Active Substance: PENICILLIN
     Indication: TOOTH ABSCESS
  2. CYMBALTA [Suspect]
     Active Substance: DULOXETINE HYDROCHLORIDE
     Indication: DIABETIC NEUROPATHY
     Dosage: 30 MG, UNK
     Dates: start: 20080919, end: 20080919

REACTIONS (18)
  - Nausea [Recovered/Resolved]
  - Vomiting [Recovered/Resolved]
  - Arthralgia [Recovered/Resolved]
  - Mydriasis [Unknown]
  - Photopsia [Recovered/Resolved]
  - Feeling abnormal [Recovered/Resolved]
  - Paraesthesia [Recovered/Resolved]
  - Balance disorder [Not Recovered/Not Resolved]
  - Abdominal pain upper [Not Recovered/Not Resolved]
  - Mydriasis [Recovered/Resolved]
  - Anger [Unknown]
  - Thinking abnormal [Recovered/Resolved]
  - Hypoaesthesia [Unknown]
  - Asthenia [Not Recovered/Not Resolved]
  - Headache [Recovered/Resolved]
  - Dysgeusia [Recovered/Resolved]
  - Dizziness [Not Recovered/Not Resolved]
  - Restless legs syndrome [Unknown]

NARRATIVE: CASE EVENT DATE: 20080919
